FAERS Safety Report 5430793-6 (Version None)
Quarter: 2007Q3

REPORT INFORMATION
  Report Type: 
  Country: None (occurrence: None)
  Receive Date: 20070830
  Receipt Date: 20061127
  Transmission Date: 20080115
  Serious: No
  Sender: FDA-Public Use
  Company Number: A0628550A

PATIENT
  Sex: Female

DRUGS (1)
  1. WELLBUTRIN [Suspect]
     Indication: DRUG USE FOR UNKNOWN INDICATION
     Dosage: 150MG PER DAY
     Route: 048

REACTIONS (4)
  - ALOPECIA [None]
  - AMENORRHOEA [None]
  - HYPERTENSION [None]
  - MENSTRUATION IRREGULAR [None]
